FAERS Safety Report 10227902 (Version 1)
Quarter: 2014Q2

REPORT INFORMATION
  Report Type: Spontaneous
  Country: US (occurrence: None)
  Receive Date: 20140609
  Receipt Date: 20140609
  Transmission Date: 20141212
  Serious: Yes (Death)
  Sender: FDA-Public Use
  Company Number: None

PATIENT
  Age: 67 Year
  Sex: Male
  Weight: 185.07 kg

DRUGS (16)
  1. RIVAROXABAN [Suspect]
     Indication: ATRIAL FIBRILLATION
     Route: 048
     Dates: start: 20140505, end: 20140525
  2. WARFARIN [Suspect]
     Indication: ATRIAL FIBRILLATION
     Route: 048
     Dates: end: 20140525
  3. CYANOCOBALAMIN [Concomitant]
  4. METHYLPHENIDATE ER [Concomitant]
  5. POTASSIUM GLUCONATE [Concomitant]
  6. ASPIRIN [Concomitant]
  7. SIMETHICONE [Concomitant]
  8. HYDROCODONE/ACETAMINOPHEN [Concomitant]
  9. RANITIDINE [Concomitant]
  10. TAMSULOSIN [Concomitant]
  11. MECLIZINE [Concomitant]
  12. HYOSCYAMINE [Concomitant]
  13. TRAMADOL [Concomitant]
  14. RIVAROXABAN [Concomitant]
  15. METOPROLOL TARTRATE [Concomitant]
  16. WARFARIN [Concomitant]

REACTIONS (4)
  - Cerebrovascular accident [None]
  - Haemorrhage intracranial [None]
  - Subdural haematoma [None]
  - International normalised ratio increased [None]
